FAERS Safety Report 6613474-2 (Version None)
Quarter: 2010Q1

REPORT INFORMATION
  Report Type: 
  Country: None (occurrence: None)
  Receive Date: 20100225
  Receipt Date: 20100217
  Transmission Date: 20100710
  Serious: Yes (Other)
  Sender: FDA-Public Use
  Company Number: SPV1-2009-02594

PATIENT
  Age: 67 Year
  Sex: Male

DRUGS (8)
  1. FOSRENOL [Suspect]
     Indication: HYPERPHOSPHATAEMIA
     Dosage: ORAL
     Route: 048
     Dates: start: 20091113, end: 20091120
  2. CALCIUM CARBONATE [Concomitant]
  3. SELBEX (TEPRENONE) [Concomitant]
  4. PRAVASTATIN [Concomitant]
  5. RABEPRAZOLE SODIUM [Concomitant]
  6. ALDOMET [Concomitant]
  7. CANDESARTAN CILEXETIL [Concomitant]
  8. LEVOTHYROXINE SODIUM [Concomitant]

REACTIONS (5)
  - BLOOD PHOSPHORUS INCREASED [None]
  - BLOOD UREA INCREASED [None]
  - GASTROINTESTINAL HAEMORRHAGE [None]
  - HAEMOGLOBIN DECREASED [None]
  - PLATELET COUNT DECREASED [None]
